FAERS Safety Report 5246734-0 (Version None)
Quarter: 2007Q1

REPORT INFORMATION
  Report Type: 
  Country: None (occurrence: None)
  Receive Date: 20070220
  Receipt Date: 20070208
  Transmission Date: 20070707
  Serious: Yes (Hospitalization)
  Sender: FDA-Public Use
  Company Number: 2006PV027522

PATIENT
  Age: 60 Year
  Sex: Male

DRUGS (13)
  1. BYETTA [Suspect]
     Indication: DIABETES MELLITUS NON-INSULIN-DEPENDENT
     Dosage: 10 MCG; SC
     Route: 058
     Dates: start: 20060801
  2. NOVOLOG [Concomitant]
  3. NORVASC [Concomitant]
  4. COREG [Concomitant]
  5. BENOCOR [Concomitant]
  6. FLOMAX [Concomitant]
  7. ANDROGEL [Concomitant]
  8. FUROSEMIDE [Concomitant]
  9. ASPIRIN [Concomitant]
  10. PLAVIX [Concomitant]
  11. PROTONIX [Concomitant]
  12. TRICOR [Concomitant]
  13. LIPITOR [Concomitant]

REACTIONS (5)
  - CARDIAC ANEURYSM [None]
  - CARDIAC FAILURE CONGESTIVE [None]
  - CONDITION AGGRAVATED [None]
  - CORONARY ARTERY OCCLUSION [None]
  - POST PROCEDURAL COMPLICATION [None]
